FAERS Safety Report 6919269-4 (Version None)
Quarter: 2010Q3

REPORT INFORMATION
  Report Type: 
  Country: None (occurrence: None)
  Receive Date: 20100811
  Receipt Date: 20100730
  Transmission Date: 20110219
  Serious: Yes (Death)
  Sender: FDA-Public Use
  Company Number: JP-SANOFI-AVENTIS-A01200907215

PATIENT
  Age: 70 Year
  Sex: Male
  Weight: 61 kg

DRUGS (14)
  1. OXALIPLATIN [Suspect]
     Indication: COLON CANCER
     Route: 041
     Dates: start: 20090611, end: 20090611
  2. OXALIPLATIN [Suspect]
     Route: 041
     Dates: start: 20090707, end: 20090707
  3. BEVACIZUMAB [Suspect]
     Indication: COLON CANCER
     Route: 041
     Dates: start: 20090611, end: 20090611
  4. BEVACIZUMAB [Suspect]
     Route: 041
     Dates: start: 20090707, end: 20090707
  5. CALCIUM LEVOFOLINATE [Concomitant]
     Route: 041
     Dates: start: 20090611, end: 20090611
  6. CALCIUM LEVOFOLINATE [Concomitant]
     Route: 041
     Dates: start: 20090707, end: 20090707
  7. FLUOROURACIL [Concomitant]
     Route: 040
     Dates: start: 20090611, end: 20090611
  8. FLUOROURACIL [Concomitant]
     Route: 041
     Dates: start: 20090611, end: 20090611
  9. GRANISETRON HCL [Concomitant]
     Indication: PREMEDICATION
     Route: 041
     Dates: start: 20090611, end: 20090707
  10. DEXAMETHASONE [Concomitant]
     Indication: PREMEDICATION
     Route: 041
     Dates: start: 20090611, end: 20090707
  11. FLUMARIN [Concomitant]
     Dosage: SID
     Route: 042
     Dates: start: 20090707, end: 20090719
  12. AMPICILLIN SODIUM/SULBACTAM SODIUM [Concomitant]
     Dosage: 1.5-3 G, BID, TID
     Route: 042
     Dates: start: 20090712, end: 20090801
  13. CEFTAZIDIME [Concomitant]
     Dosage: SID, BID
     Route: 042
     Dates: start: 20090721, end: 20090726
  14. RASENAZOLIN [Concomitant]
     Dosage: SID, BID
     Route: 041
     Dates: start: 20090802, end: 20090803

REACTIONS (2)
  - ANAPHYLACTIC SHOCK [None]
  - CARDIO-RESPIRATORY ARREST [None]
